FAERS Safety Report 6118616-3 (Version None)
Quarter: 2009Q1

REPORT INFORMATION
  Report Type: 
  Country: None (occurrence: None)
  Receive Date: 20090314
  Receipt Date: 20090220
  Transmission Date: 20090719
  Serious: No
  Sender: FDA-Public Use
  Company Number: US-ABBOTT-09P-163-0558885-00

PATIENT
  Sex: Female
  Weight: 129.39 kg

DRUGS (5)
  1. HUMIRA [Suspect]
     Indication: PSORIASIS
     Dates: start: 20090101
  2. METFORMIN HCL [Concomitant]
     Indication: DIABETES MELLITUS
  3. HYDROCHLOROTHIAZIDE [Concomitant]
     Indication: HYPERTENSION
  4. IBUPROFEN [Concomitant]
     Indication: PAIN
  5. AMBIEN [Concomitant]
     Indication: INSOMNIA

REACTIONS (3)
  - CHEST PAIN [None]
  - MUSCLE STRAIN [None]
  - PAIN [None]
